FAERS Safety Report 8294059-1 (Version None)
Quarter: 2012Q2

REPORT INFORMATION
  Report Type: 
  Country: None (occurrence: None)
  Receive Date: 20120413
  Receipt Date: 20120305
  Transmission Date: 20120825
  Serious: Yes (Other)
  Sender: FDA-Public Use
  Company Number: GGEL20120300211

PATIENT
  Age: 29 Year
  Sex: Female

DRUGS (3)
  1. MULTIVITAMIN B1 AND B2 (VITAMIN B1, VITAMIN B12) [Suspect]
  2. ALBUTAMOL (ALBUTAMOL) (INHALANT) [Concomitant]
  3. NORGESTIMATE AND ETHINYL ESTRADIOL [Suspect]
     Indication: INJECTABLE CONTRACEPTION
     Dosage: 1 PILL, 1 IN 1 D, ORAL
     Route: 048
     Dates: start: 20110301, end: 20120218

REACTIONS (4)
  - PRODUCT QUALITY ISSUE [None]
  - PREGNANCY ON ORAL CONTRACEPTIVE [None]
  - MATERNAL EXPOSURE DURING PREGNANCY [None]
  - DRUG INEFFECTIVE [None]
